FAERS Safety Report 7009189-1 (Version None)
Quarter: 2010Q3

REPORT INFORMATION
  Report Type: 
  Country: None (occurrence: None)
  Receive Date: 20100923
  Receipt Date: 20100914
  Transmission Date: 20110219
  Serious: Yes (Other)
  Sender: FDA-Public Use
  Company Number: NL-JNJFOC-20100905299

PATIENT
  Sex: Male

DRUGS (2)
  1. CONCERTA [Suspect]
     Indication: PRODUCT USED FOR UNKNOWN INDICATION
     Route: 065
  2. CONCERTA [Suspect]
     Route: 065

REACTIONS (2)
  - EPISTAXIS [None]
  - INITIAL INSOMNIA [None]
